FAERS Safety Report 20281971 (Version 2)
Quarter: 2022Q1

REPORT INFORMATION
  Report Type: Other
  Country: US (occurrence: None)
  Receive Date: 20220103
  Receipt Date: 20220120
  Transmission Date: 20220423
  Serious: Yes (Hospitalization, Other)
  Sender: FDA-Public Use
  Company Number: US-ROCHE-2986476

PATIENT
  Age: 64 Year
  Sex: Male
  Weight: 83.990 kg

DRUGS (4)
  1. OCREVUS [Suspect]
     Active Substance: OCRELIZUMAB
     Indication: Primary progressive multiple sclerosis
     Dosage: 30MG/ML INJECTION
     Route: 042
  2. AMLODIPINE [Concomitant]
     Active Substance: AMLODIPINE BESYLATE
  3. LEVOTHYROXINE [Concomitant]
     Active Substance: LEVOTHYROXINE
  4. LOSARTAN [Concomitant]
     Active Substance: LOSARTAN

REACTIONS (15)
  - COVID-19 pneumonia [Recovered/Resolved]
  - Loss of consciousness [Recovered/Resolved]
  - Head injury [Recovered/Resolved]
  - Weight decreased [Recovering/Resolving]
  - Contusion [Recovered/Resolved with Sequelae]
  - Dysgraphia [Not Recovered/Not Resolved]
  - Peroneal nerve palsy [Not Recovered/Not Resolved]
  - Amnesia [Unknown]
  - Rhabdomyolysis [Unknown]
  - Encephalopathy [Unknown]
  - Neuropathy peripheral [Unknown]
  - Decubitus ulcer [Unknown]
  - Dyspnoea [Unknown]
  - Hypoxia [Unknown]
  - Syncope [Unknown]

NARRATIVE: CASE EVENT DATE: 20210801
